FAERS Safety Report 8426083-X (Version None)
Quarter: 2012Q2

REPORT INFORMATION
  Report Type: 
  Country: None (occurrence: None)
  Receive Date: 20120611
  Receipt Date: 20120529
  Transmission Date: 20120825
  Serious: Yes (Hospitalization)
  Sender: FDA-Public Use
  Company Number: FR-ELI_LILLY_AND_COMPANY-FR201203001079

PATIENT
  Sex: Female
  Weight: 87 kg

DRUGS (5)
  1. VALPROIC ACID [Concomitant]
     Indication: ABNORMAL BEHAVIOUR
     Dosage: 300 MG, TID
  2. IMOVANE [Concomitant]
     Indication: ABNORMAL BEHAVIOUR
     Dosage: 7.5 MG, QD
  3. CYMBALTA [Suspect]
     Indication: DEPRESSION
     Dosage: 60 MG, QD
     Route: 048
     Dates: start: 20111017, end: 20111230
  4. TRANXENE [Concomitant]
     Indication: ABNORMAL BEHAVIOUR
     Dosage: 10 MG, TID
  5. OMEPRAZOLE [Concomitant]
     Indication: ABNORMAL BEHAVIOUR
     Dosage: 20 MG, QD

REACTIONS (4)
  - DEPRESSION [None]
  - OEDEMA PERIPHERAL [None]
  - HYPERTENSION [None]
  - SCIATICA [None]
